FAERS Safety Report 5534578-1 (Version None)
Quarter: 2007Q4

REPORT INFORMATION
  Report Type: 
  Country: None (occurrence: None)
  Receive Date: 20071205
  Receipt Date: 20071121
  Transmission Date: 20080405
  Serious: Yes (Other)
  Sender: FDA-Public Use
  Company Number: AU-ELI_LILLY_AND_COMPANY-AU200711000655

PATIENT
  Age: 82 Year
  Sex: Female
  Weight: 61 kg

DRUGS (5)
  1. EVISTA [Suspect]
     Indication: OSTEOPOROSIS
     Dosage: 60 MG, UNK
     Route: 048
     Dates: start: 20070601, end: 20070601
  2. ATENOLOL [Concomitant]
     Dosage: 50 MG/KG, UNK
  3. ATORVASTATIN [Concomitant]
     Dosage: 10 MG, UNK
  4. TELMISARTAN [Concomitant]
     Dosage: 80 MG, UNK
  5. PANTOPRAZOLE SODIUM [Concomitant]
     Dosage: 40 MG, UNK

REACTIONS (2)
  - LACUNAR INFARCTION [None]
  - MIGRAINE [None]
